FAERS Safety Report 18348479 (Version 2)
Quarter: 2020Q4

REPORT INFORMATION
  Report Type: Spontaneous
  Country: US (occurrence: US)
  Receive Date: 20201006
  Receipt Date: 20201013
  Transmission Date: 20210114
  Serious: No
  Sender: FDA-Public Use
  Company Number: US-MYLANLABS-2020M1083461

PATIENT
  Age: 23 Year
  Sex: Female
  Weight: 118 kg

DRUGS (3)
  1. XULANE [Suspect]
     Active Substance: ETHINYL ESTRADIOL\NORELGESTROMIN
     Indication: HORMONE LEVEL ABNORMAL
     Dosage: UNK, 150/35 MICROGRAM, 1 PATCH A WEEK FOR 3 WEEKS AND THE 4TH WEEK IS PATCH FREE
     Route: 062
     Dates: start: 20200919
  2. XULANE [Suspect]
     Active Substance: ETHINYL ESTRADIOL\NORELGESTROMIN
     Dosage: UNK, 150/35 MICROGRAM, 1 PATCH A WEEK FOR 3 WEEKS AND THE 4TH WEEK IS PATCH FREE
     Route: 062
     Dates: start: 20200926
  3. XULANE [Suspect]
     Active Substance: ETHINYL ESTRADIOL\NORELGESTROMIN
     Dosage: UNK, 150/35 MICROGRAM, 1 PATCH A WEEK FOR 3 WEEKS AND THE 4TH WEEK IS PATCH FREE
     Route: 062
     Dates: start: 20200920

REACTIONS (3)
  - Off label use [Not Recovered/Not Resolved]
  - Product dose omission issue [Recovered/Resolved]
  - Product adhesion issue [Not Recovered/Not Resolved]

NARRATIVE: CASE EVENT DATE: 20200920
